FAERS Safety Report 25863217 (Version 1)
Quarter: 2025Q3

REPORT INFORMATION
  Report Type: Spontaneous
  Country: US (occurrence: US)
  Receive Date: 20250930
  Receipt Date: 20250930
  Transmission Date: 20251020
  Serious: Yes (Hospitalization)
  Sender: JUBILANT
  Company Number: None

PATIENT
  Age: 37 Year
  Sex: Male

DRUGS (6)
  1. MEMANTINE HYDROCHLORIDE [Suspect]
     Active Substance: MEMANTINE HYDROCHLORIDE
     Indication: Catatonia
     Dosage: 15 MG, ONCE PER DAY
     Route: 065
  2. RISPERIDONE [Concomitant]
     Active Substance: RISPERIDONE
     Indication: Psychotic disorder
     Dosage: 4 MG, 2 TIMES PER DAY
     Route: 065
  3. DIPHENHYDRAMINE [Concomitant]
     Active Substance: DIPHENHYDRAMINE
     Indication: Extrapyramidal disorder
     Dosage: 50 MG, 2 TIMES PER DAY
     Route: 065
  4. DIPHENHYDRAMINE [Concomitant]
     Active Substance: DIPHENHYDRAMINE
     Indication: Prophylaxis
  5. DIVALPROEX SODIUM [Concomitant]
     Active Substance: DIVALPROEX SODIUM
     Indication: Mood swings
     Dosage: 500 MG, 2 TIMES PER DAY (DELAYED RELEASE)
     Route: 065
  6. LORAZEPAM [Concomitant]
     Active Substance: LORAZEPAM
     Indication: Catatonia
     Dosage: 1 MG, 2 TIMES PER DAY
     Route: 065

REACTIONS (1)
  - Aggression [Recovering/Resolving]
